FAERS Safety Report 6253524-9 (Version None)
Quarter: 2009Q2

REPORT INFORMATION
  Report Type: 
  Country: None (occurrence: None)
  Receive Date: 20090629
  Receipt Date: 20090629
  Transmission Date: 20091009
  Serious: Yes (Hospitalization, Disabling)
  Sender: FDA-Public Use
  Company Number: None

PATIENT
  Age: 72 Year
  Sex: Male
  Weight: 72.5755 kg

DRUGS (1)
  1. LEVAQUIN [Suspect]
     Indication: BRONCHITIS VIRAL
     Dosage: INTRAVENOUSLY UNKNOWN IV
     Route: 042
     Dates: start: 20090603, end: 20090605

REACTIONS (4)
  - SWELLING [None]
  - TENDON PAIN [None]
  - TENDON RUPTURE [None]
  - WALKING AID USER [None]
